FAERS Safety Report 16928515 (Version 2)
Quarter: 2019Q4

REPORT INFORMATION
  Report Type: Spontaneous
  Country: US (occurrence: US)
  Receive Date: 20191017
  Receipt Date: 20191225
  Transmission Date: 20200122
  Serious: Yes (Life-Threatening, Hospitalization)
  Sender: FDA-Public Use
  Company Number: US-BIOGEN-2019BI00796749

PATIENT
  Sex: Male

DRUGS (4)
  1. AVONEX [Suspect]
     Active Substance: INTERFERON BETA-1A
  2. AVONEX [Suspect]
     Active Substance: INTERFERON BETA-1A
  3. AVONEX [Suspect]
     Active Substance: INTERFERON BETA-1A
     Indication: MULTIPLE SCLEROSIS
     Route: 030
  4. AVONEX [Suspect]
     Active Substance: INTERFERON BETA-1A

REACTIONS (5)
  - Cerebrovascular accident [Unknown]
  - Treatment noncompliance [Unknown]
  - Dementia [Unknown]
  - Dizziness [Unknown]
  - Fall [Recovered/Resolved]
